FAERS Safety Report 5040870-X (Version None)
Quarter: 2006Q2

REPORT INFORMATION
  Report Type: 
  Country: None (occurrence: None)
  Receive Date: 20060629
  Receipt Date: 20060629
  Transmission Date: 20061013
  Serious: Yes (Other)
  Sender: FDA-Public Use
  Company Number: None

PATIENT
  Age: 58 Year
  Sex: Female
  Weight: 56.6996 kg

DRUGS (1)
  1. BONIVA [Suspect]
     Indication: OSTEOPOROSIS
     Dates: start: 20051103, end: 20060615

REACTIONS (8)
  - DYSGEUSIA [None]
  - ENDODONTIC PROCEDURE [None]
  - FACIAL PAIN [None]
  - GLOSSODYNIA [None]
  - HERPES SIMPLEX [None]
  - PAIN IN JAW [None]
  - TOOTH INFECTION [None]
  - TOOTHACHE [None]
